FAERS Safety Report 8924771 (Version 3)
Quarter: 2013Q1

REPORT INFORMATION
  Report Type: Spontaneous
  Country: US (occurrence: US)
  Receive Date: 20121126
  Receipt Date: 20130122
  Transmission Date: 20140127
  Serious: Yes (Hospitalization, Other)
  Sender: FDA-Public Use
  Company Number: US-PFIZER INC-2012294946

PATIENT
  Age: 52 Year
  Sex: Male
  Weight: 72.6 kg

DRUGS (2)
  1. DILANTIN [Suspect]
     Indication: CONVULSION
     Dosage: 100 MG, 4X/DAY
     Route: 048
     Dates: start: 2006
  2. SYNTHROID [Concomitant]
     Indication: THYROID DISORDER
     Dosage: UNK

REACTIONS (1)
  - Drug ineffective [Unknown]
